FAERS Safety Report 26203748 (Version 1)
Quarter: 2025Q4

REPORT INFORMATION
  Report Type: Spontaneous
  Country: US (occurrence: US)
  Receive Date: 20251226
  Receipt Date: 20251226
  Transmission Date: 20260117
  Serious: Yes (Life-Threatening, Hospitalization, Other)
  Sender: UNITED THERAPEUTICS
  Company Number: US-UNITED THERAPEUTICS-UNT-2025-043341

PATIENT
  Age: 35 Year
  Sex: Female

DRUGS (3)
  1. REMODULIN [Suspect]
     Active Substance: TREPROSTINIL
     Indication: Pulmonary arterial hypertension
     Dosage: UNK, CONTINUING
  2. NITRIC OXIDE [Concomitant]
     Active Substance: NITRIC OXIDE
     Indication: Cardiogenic shock
  3. NITRIC OXIDE [Concomitant]
     Active Substance: NITRIC OXIDE
     Indication: Pulmonary hypertensive crisis

REACTIONS (11)
  - Cardiogenic shock [Unknown]
  - Pulmonary hypertensive crisis [Unknown]
  - Ventricular fibrillation [Recovered/Resolved with Sequelae]
  - Septic shock [Unknown]
  - Staphylococcal bacteraemia [Unknown]
  - Acute right ventricular failure [Unknown]
  - Multiple organ dysfunction syndrome [Unknown]
  - Brain injury [Unknown]
  - Gallbladder disorder [Recovered/Resolved]
  - Gallbladder enlargement [Recovered/Resolved]
  - Post procedural complication [Unknown]
